FAERS Safety Report 11003542 (Version 1)
Quarter: 2015Q2

REPORT INFORMATION
  Report Type: Spontaneous
  Country: US (occurrence: None)
  Receive Date: 20150408
  Receipt Date: 20150408
  Transmission Date: 20150821
  Serious: Yes (Hospitalization, Disabling)
  Sender: FDA-Public Use
  Company Number: None

PATIENT
  Age: 44 Year
  Sex: Female
  Weight: 132.9 kg

DRUGS (6)
  1. VITAMIN B12 [Concomitant]
     Active Substance: CYANOCOBALAMIN
  2. MULTI VITAMIN [Concomitant]
     Active Substance: VITAMINS
  3. EXTRA VITAMIN C [Concomitant]
  4. CIPROFLOXACIN. [Suspect]
     Active Substance: CIPROFLOXACIN
     Indication: CYSTITIS
     Dosage: ADMINISTERED IN THE ER VIA IV
     Route: 042
  5. CIPRO [Concomitant]
     Active Substance: CIPROFLOXACIN HYDROCHLORIDE
  6. EXTRA VITAMIN D3 [Concomitant]

REACTIONS (8)
  - Arthralgia [None]
  - Arthritis [None]
  - Wheelchair user [None]
  - Reiter^s syndrome [None]
  - Neuropathy peripheral [None]
  - Weight increased [None]
  - Arthritis reactive [None]
  - Nerve injury [None]

NARRATIVE: CASE EVENT DATE: 20070427
